FAERS Safety Report 8358880-3 (Version None)
Quarter: 2012Q2

REPORT INFORMATION
  Report Type: 
  Country: None (occurrence: None)
  Receive Date: 20120515
  Receipt Date: 20120504
  Transmission Date: 20120825
  Serious: Yes (Hospitalization)
  Sender: FDA-Public Use
  Company Number: US-BIOGENIDEC-2012BI006293

PATIENT
  Age: 49 Year
  Sex: Female

DRUGS (3)
  1. AVONEX [Suspect]
     Indication: MULTIPLE SCLEROSIS
     Route: 030
     Dates: start: 20001201, end: 20120104
  2. AVONEX [Suspect]
     Route: 030
     Dates: start: 20120201
  3. GILENYA [Concomitant]

REACTIONS (4)
  - GALLBLADDER OPERATION [None]
  - ANAESTHETIC COMPLICATION [None]
  - CHOLECYSTITIS [None]
  - PALPITATIONS [None]
